FAERS Safety Report 4405776-5 (Version None)
Quarter: 2004Q3

REPORT INFORMATION
  Report Type: 
  Country: None (occurrence: None)
  Receive Date: 20040723
  Receipt Date: 20031209
  Transmission Date: 20050211
  Serious: No
  Sender: FDA-Public Use
  Company Number: US-GLAXOSMITHKLINE-A0442542A

PATIENT
  Age: 73 Year
  Sex: Male

DRUGS (11)
  1. AVANDIA [Suspect]
     Dosage: 8MG PER DAY
     Route: 048
     Dates: end: 20031209
  2. DIGOXIN [Concomitant]
  3. GLUCOPHAGE [Concomitant]
  4. GLYBURIDE [Concomitant]
  5. LASIX [Concomitant]
  6. COREG [Concomitant]
  7. WARFARIN SODIUM [Concomitant]
  8. VASOTEC [Concomitant]
  9. FOLIC ACID [Concomitant]
  10. VITAMIN E [Concomitant]
  11. CALCIUM [Concomitant]

REACTIONS (1)
  - DYSPNOEA [None]
